FAERS Safety Report 4717969-8 (Version None)
Quarter: 2005Q3

REPORT INFORMATION
  Report Type: 
  Country: None (occurrence: None)
  Receive Date: 20050718
  Receipt Date: 20050201
  Transmission Date: 20060218
  Serious: No
  Sender: FDA-Public Use
  Company Number: 2005000242

PATIENT
  Age: 57 Year
  Sex: Female
  Weight: 52.1637 kg

DRUGS (12)
  1. TARCEVA [Suspect]
     Indication: LUNG NEOPLASM MALIGNANT
     Dosage: 150 MG (QD), ORAL
     Route: 048
     Dates: start: 20050111, end: 20050122
  2. OCCUVITE [Concomitant]
  3. VIVELLE [Concomitant]
  4. FLOVENT [Concomitant]
  5. ASTILIN [Concomitant]
  6. ALLEGRA [Concomitant]
  7. MULTIVITAMIN [Concomitant]
  8. VITAMIN D [Concomitant]
  9. VITAMIN A [Concomitant]
  10. CALCIUM(CALCIUM) [Concomitant]
  11. ASPIRIN [Concomitant]
  12. LOPERAMIDE HCL [Concomitant]

REACTIONS (6)
  - ACNE [None]
  - ALOPECIA [None]
  - DIARRHOEA [None]
  - FLUSHING [None]
  - NASAL ULCER [None]
  - RASH PAPULAR [None]
